FAERS Safety Report 16608469 (Version 1)
Quarter: 2019Q3

REPORT INFORMATION
  Report Type: Spontaneous
  Country: US (occurrence: US)
  Receive Date: 20190719
  Receipt Date: 20190719
  Transmission Date: 20191004
  Serious: Yes (Death)
  Sender: FDA-Public Use
  Company Number: None

PATIENT
  Age: 54 Year
  Sex: Male

DRUGS (6)
  1. FUROSEMIDE, LISINOPRIL, METFORMIN [Concomitant]
  2. METOPROL, OMEPRAZOLE, PREDNISONE [Concomitant]
  3. ACETAMIN, ACYCLOVIR, ADVOCATE [Concomitant]
  4. SYMBICORT, TRAMADOL, VENTOLIN [Concomitant]
  5. REPATHA [Suspect]
     Active Substance: EVOLOCUMAB
     Indication: TYPE V HYPERLIPIDAEMIA
     Dosage: ?          OTHER FREQUENCY:Q 2 WEEKS;?
     Route: 058
     Dates: start: 20190518, end: 20190702
  6. DIGOX, DULERA, ELIQUIS [Concomitant]

REACTIONS (1)
  - Death [None]

NARRATIVE: CASE EVENT DATE: 20190702
